FAERS Safety Report 5590225-4 (Version None)
Quarter: 2008Q1

REPORT INFORMATION
  Report Type: 
  Country: None (occurrence: None)
  Receive Date: 20080114
  Receipt Date: 20080110
  Transmission Date: 20080703
  Serious: Yes (Death)
  Sender: FDA-Public Use
  Company Number: US-ASTRAZENECA-2008AC00150

PATIENT
  Age: 33 Year
  Sex: Female

DRUGS (5)
  1. QUETIAPINE [Suspect]
  2. CITALOPRAM [Suspect]
  3. BENZODIAZEPINE [Suspect]
  4. HEROIN [Suspect]
  5. UNKNOWN DRUG [Suspect]

REACTIONS (2)
  - CARDIO-RESPIRATORY ARREST [None]
  - DEATH [None]
